FAERS Safety Report 7556863-4 (Version None)
Quarter: 2011Q2

REPORT INFORMATION
  Report Type: 
  Country: None (occurrence: None)
  Receive Date: 20110620
  Receipt Date: 20110610
  Transmission Date: 20111010
  Serious: Yes (Hospitalization)
  Sender: FDA-Public Use
  Company Number: ES-SP-2011-03372

PATIENT
  Age: 61 Year
  Sex: Male

DRUGS (3)
  1. ZOCOR [Concomitant]
     Route: 048
  2. AMILORIDE HCL AND HYDROCHLOROTHIAZIDE [Concomitant]
     Dosage: 5MG/50MG ONCE DAILY
     Route: 048
  3. IMMUCYST [Suspect]
     Indication: BLADDER CANCER
     Route: 043
     Dates: start: 20100914, end: 20101005

REACTIONS (3)
  - FLANK PAIN [None]
  - PYREXIA [None]
  - PYELONEPHRITIS [None]
